FAERS Safety Report 11359884 (Version 2)
Quarter: 2015Q3

REPORT INFORMATION
  Report Type: Report from Study
  Country: CH (occurrence: CH)
  Receive Date: 20150809
  Receipt Date: 20150911
  Transmission Date: 20151125
  Serious: Yes (Hospitalization)
  Sender: FDA-Public Use
  Company Number: CH-BRISTOL-MYERS SQUIBB COMPANY-BMS-2015-037039

PATIENT
  Age: 81 Year
  Sex: Female

DRUGS (2)
  1. CAPECITABINE. [Suspect]
     Active Substance: CAPECITABINE
     Indication: COLORECTAL CANCER METASTATIC
     Dosage: 1000 MG/M2, BID
     Route: 042
     Dates: start: 20130527, end: 20130924
  2. CETUXIMAB [Suspect]
     Active Substance: CETUXIMAB
     Indication: COLORECTAL CANCER METASTATIC
     Dosage: 500 MG/M2, Q2WK
     Route: 042
     Dates: start: 20130527, end: 20131016

REACTIONS (1)
  - Carotid arterial embolus [Recovered/Resolved with Sequelae]

NARRATIVE: CASE EVENT DATE: 20131023
